FAERS Safety Report 6056172-9 (Version None)
Quarter: 2009Q1

REPORT INFORMATION
  Report Type: 
  Country: None (occurrence: None)
  Receive Date: 20090123
  Receipt Date: 20090123
  Transmission Date: 20090719
  Serious: Yes (Death)
  Sender: FDA-Public Use
  Company Number: None

PATIENT
  Sex: Male

DRUGS (1)
  1. ISOSORBIDE MONONITRATE [Suspect]

REACTIONS (3)
  - CARDIAC FAILURE [None]
  - CONVULSION [None]
  - PRODUCT QUALITY ISSUE [None]
